FAERS Safety Report 20306532 (Version 1)
Quarter: 2022Q1

REPORT INFORMATION
  Report Type: Spontaneous
  Country: CN (occurrence: CN)
  Receive Date: 20220106
  Receipt Date: 20220106
  Transmission Date: 20220423
  Serious: Yes (Other)
  Sender: FDA-Public Use
  Company Number: CN-PFIZER INC-202101878400

PATIENT
  Age: 33 Year
  Sex: Female
  Weight: 53 kg

DRUGS (4)
  1. CYTARABINE [Suspect]
     Active Substance: CYTARABINE
     Indication: Chemotherapy
     Dosage: 580 MG, 2X/DAY
     Route: 041
     Dates: start: 20210917, end: 20210920
  2. ETOPOSIDE [Suspect]
     Active Substance: ETOPOSIDE
     Indication: Chemotherapy
     Dosage: 0.22 G, 1X/DAY
     Route: 041
     Dates: start: 20210917, end: 20210920
  3. CARMUSTINE [Suspect]
     Active Substance: CARMUSTINE
     Indication: Chemotherapy
     Dosage: UNK
     Route: 041
     Dates: start: 20210917, end: 20210920
  4. MELPHALAN [Suspect]
     Active Substance: MELPHALAN
     Indication: Chemotherapy
     Dosage: UNK
     Route: 041
     Dates: start: 20210917, end: 20210920

REACTIONS (5)
  - Myelosuppression [Recovering/Resolving]
  - C-reactive protein increased [Not Recovered/Not Resolved]
  - Gastrointestinal disorder [Unknown]
  - Decreased appetite [Unknown]
  - Pyrexia [Recovering/Resolving]

NARRATIVE: CASE EVENT DATE: 20210925
